FAERS Safety Report 5923959-X (Version None)
Quarter: 2008Q4

REPORT INFORMATION
  Report Type: 
  Country: None (occurrence: None)
  Receive Date: 20081015
  Receipt Date: 20080930
  Transmission Date: 20090506
  Serious: Yes (Hospitalization, Other)
  Sender: FDA-Public Use
  Company Number: 20062902

PATIENT
  Age: 60 Year
  Sex: Male

DRUGS (1)
  1. LIORESAL [Suspect]
     Indication: MUSCLE SPASTICITY
     Dosage: 100 MG, ONCE/SINGLE, INTRATHEC
     Route: 037
     Dates: start: 20060327

REACTIONS (14)
  - AREFLEXIA [None]
  - BRADYCARDIA [None]
  - COMA [None]
  - DEPRESSION [None]
  - DIPLOPIA [None]
  - HALLUCINATION, VISUAL [None]
  - HYPERTHERMIA [None]
  - HYPOTENSION [None]
  - HYPOTONIA [None]
  - MIOSIS [None]
  - OVERDOSE [None]
  - PARALYSIS [None]
  - POISONING [None]
  - RESPIRATORY DEPRESSION [None]
